FAERS Safety Report 5629961-X (Version None)
Quarter: 2008Q1

REPORT INFORMATION
  Report Type: 
  Country: None (occurrence: None)
  Receive Date: 20080218
  Receipt Date: 20080206
  Transmission Date: 20080703
  Serious: Yes (Death)
  Sender: FDA-Public Use
  Company Number: JP-ROCHE-522800

PATIENT
  Age: 59 Year
  Sex: Female
  Weight: 38 kg

DRUGS (5)
  1. PEGASYS [Suspect]
     Route: 058
     Dates: start: 20070910, end: 20071023
  2. COPEGUS [Suspect]
     Dosage: DIVIDED INTO 2 DOSES.
     Route: 048
     Dates: start: 20070910, end: 20071008
  3. COPEGUS [Suspect]
     Route: 048
     Dates: start: 20071009, end: 20071030
  4. THYRADIN S [Concomitant]
     Route: 048
     Dates: start: 20071023
  5. SOLON [Concomitant]
     Route: 048
     Dates: start: 20071023

REACTIONS (4)
  - ALANINE AMINOTRANSFERASE INCREASED [None]
  - ASPARTATE AMINOTRANSFERASE INCREASED [None]
  - PULMONARY HYPERTENSION [None]
  - RIGHT VENTRICULAR FAILURE [None]
